FAERS Safety Report 7857906-0 (Version None)
Quarter: 2011Q4

REPORT INFORMATION
  Report Type: 
  Country: None (occurrence: None)
  Receive Date: 20111027
  Receipt Date: 20110214
  Transmission Date: 20120403
  Serious: No
  Sender: FDA-Public Use
  Company Number: US-BAYER-2011-015101

PATIENT
  Sex: Male
  Weight: 103 kg

DRUGS (3)
  1. ALEVE (CAPLET) [Suspect]
     Indication: ARTHRITIS
     Dosage: DAILY DOSE 1 DF
     Route: 048
     Dates: start: 20100101
  2. ALLOPURINOL [Concomitant]
  3. ATENOLOL [Concomitant]

REACTIONS (1)
  - DIZZINESS [None]
